FAERS Safety Report 9612287 (Version 3)
Quarter: 2014Q2

REPORT INFORMATION
  Report Type: Spontaneous
  Country: US (occurrence: US)
  Receive Date: 20131010
  Receipt Date: 20140408
  Transmission Date: 20141212
  Serious: No
  Sender: FDA-Public Use
  Company Number: US-ASTELLAS-2013US008218

PATIENT
  Age: 67 Year
  Sex: Male

DRUGS (2)
  1. MYRBETRIQ [Suspect]
     Indication: HYPERTONIC BLADDER
     Dosage: 25 MG, DAILY
     Route: 048
     Dates: start: 20130608
  2. MYRBETRIQ [Suspect]
     Indication: POLLAKIURIA
     Dosage: 50 MG, DAILY
     Route: 048
     Dates: start: 201301

REACTIONS (3)
  - Drug ineffective [Not Recovered/Not Resolved]
  - Nocturia [Not Recovered/Not Resolved]
  - Urinary incontinence [Unknown]
